FAERS Safety Report 4308880-5 (Version None)
Quarter: 2004Q1

REPORT INFORMATION
  Report Type: 
  Country: None (occurrence: None)
  Receive Date: 20040227
  Receipt Date: 20040217
  Transmission Date: 20041129
  Serious: Yes (Hospitalization)
  Sender: FDA-Public Use
  Company Number: 2003036150

PATIENT
  Age: 54 Year
  Sex: Male
  Weight: 60 kg

DRUGS (4)
  1. VIAGRA [Suspect]
     Indication: ERECTILE DYSFUNCTION
     Dosage: 50 MG (PRN), ORAL
     Route: 048
     Dates: start: 20000221, end: 20030710
  2. MIYARI BACTERIA (MIYARI BACTERIA) [Suspect]
     Indication: DIARRHOEA
     Dosage: TID, ORAL
     Route: 048
     Dates: start: 20030710, end: 20030716
  3. RANITIDINE HYDROCHLORIDE [Suspect]
     Indication: GASTRIC ULCER
     Dosage: BID, ORAL
     Route: 048
     Dates: start: 20030711, end: 20030812
  4. IRSOGLADINE MALEATE (IRSOGLADINE MALEATE) [Concomitant]

REACTIONS (6)
  - COLITIS ULCERATIVE [None]
  - DIABETES MELLITUS [None]
  - FAECES DISCOLOURED [None]
  - GASTRITIS [None]
  - GRANULOMA [None]
  - INTESTINAL POLYP [None]
